FAERS Safety Report 23483418 (Version 3)
Quarter: 2024Q1

REPORT INFORMATION
  Report Type: Spontaneous
  Country: US (occurrence: US)
  Receive Date: 20240205
  Receipt Date: 20240321
  Transmission Date: 20240410
  Serious: Yes (Hospitalization)
  Sender: FDA-Public Use
  Company Number: US-PFIZER INC-202400030052

PATIENT
  Age: 78 Year
  Sex: Female
  Weight: 60.33 kg

DRUGS (5)
  1. PAXLOVID [Suspect]
     Active Substance: NIRMATRELVIR\RITONAVIR
     Indication: COVID-19 treatment
     Dosage: [NIRMATRELVIR 300 MG]/[RITONAVIR 100 MG]; 2X/DAY
     Route: 048
     Dates: start: 20240119, end: 20240123
  2. RAMIPRIL [Concomitant]
     Active Substance: RAMIPRIL
     Indication: Bundle branch block left
     Dosage: 2.5 MG, 1X/DAY
  3. CARVEDILOL [Concomitant]
     Active Substance: CARVEDILOL
     Indication: Bundle branch block left
     Dosage: 12.5 MG, 2X/DAY
  4. TYLENOL [Concomitant]
     Active Substance: ACETAMINOPHEN
     Indication: Headache
     Dosage: UNK
  5. TYLENOL [Concomitant]
     Active Substance: ACETAMINOPHEN
     Indication: Pyrexia

REACTIONS (7)
  - Pyrexia [Recovered/Resolved]
  - Sinus headache [Recovered/Resolved]
  - Sinusitis [Not Recovered/Not Resolved]
  - Migraine [Recovered/Resolved]
  - Periorbital swelling [Not Recovered/Not Resolved]
  - Ageusia [Recovered/Resolved]
  - Brain fog [Not Recovered/Not Resolved]

NARRATIVE: CASE EVENT DATE: 20240127
